FAERS Safety Report 21779167 (Version 8)
Quarter: 2023Q1

REPORT INFORMATION
  Report Type: Spontaneous
  Country: HR (occurrence: HR)
  Receive Date: 20221226
  Receipt Date: 20230208
  Transmission Date: 20230417
  Serious: Yes (Other)
  Sender: FDA-Public Use
  Company Number: HR-BRISTOL-MYERS SQUIBB COMPANY-2022-151110

PATIENT
  Age: 73 Year
  Sex: Male
  Weight: 105 kg

DRUGS (49)
  1. ROSUVASTATIN [Suspect]
     Active Substance: ROSUVASTATIN
     Indication: Product used for unknown indication
     Dosage: 20 MG
     Route: 065
  2. ROSUVASTATIN [Suspect]
     Active Substance: ROSUVASTATIN
     Dosage: 10 MG
     Route: 065
  3. CLOPIDOGREL BISULFATE [Suspect]
     Active Substance: CLOPIDOGREL BISULFATE
     Indication: Product used for unknown indication
     Dosage: 100 MG
     Route: 065
     Dates: start: 2016
  4. CLOPIDOGREL BISULFATE [Suspect]
     Active Substance: CLOPIDOGREL BISULFATE
     Dosage: 75 MG
     Route: 065
     Dates: end: 2016
  5. CLOPIDOGREL [Suspect]
     Active Substance: CLOPIDOGREL BISULFATE
     Indication: Product used for unknown indication
     Dosage: 75 MG
     Route: 065
     Dates: end: 2016
  6. RAMIPRIL [Suspect]
     Active Substance: RAMIPRIL
     Indication: Product used for unknown indication
     Dosage: 2.5 MG
     Route: 065
  7. RAMIPRIL [Suspect]
     Active Substance: RAMIPRIL
     Dosage: 5 MG
     Route: 065
  8. RAMIPRIL [Suspect]
     Active Substance: RAMIPRIL
     Dosage: 3 MG
     Route: 065
  9. RAMIPRIL [Suspect]
     Active Substance: RAMIPRIL
     Dosage: 3 MG
     Route: 065
  10. RAMIPRIL [Suspect]
     Active Substance: RAMIPRIL
     Dosage: 3 MG
     Route: 065
  11. RAMIPRIL [Suspect]
     Active Substance: RAMIPRIL
     Dosage: 5 MG
     Route: 065
  12. PANTOPRAZOLE [Suspect]
     Active Substance: PANTOPRAZOLE
     Indication: Product used for unknown indication
     Dosage: 40 MG
     Route: 065
  13. PANTOPRAZOLE [Suspect]
     Active Substance: PANTOPRAZOLE
     Dosage: 40 MG
     Route: 065
  14. PANTOPRAZOLE [Suspect]
     Active Substance: PANTOPRAZOLE
     Dosage: 40 MG
     Route: 065
  15. DABIGATRAN [Suspect]
     Active Substance: DABIGATRAN
     Indication: Product used for unknown indication
     Dosage: 110 MG, BID
     Route: 065
  16. DABIGATRAN [Suspect]
     Active Substance: DABIGATRAN
     Dosage: 220 MG, QD (110 MG, 2X/DAY)
     Route: 065
  17. DABIGATRAN [Suspect]
     Active Substance: DABIGATRAN
     Dosage: 110 MG, QD
     Route: 065
  18. AMIODARONE HYDROCHLORIDE [Suspect]
     Active Substance: AMIODARONE HYDROCHLORIDE
     Indication: Product used for unknown indication
     Dosage: 200 MG
     Route: 065
  19. AMIODARONE HYDROCHLORIDE [Suspect]
     Active Substance: AMIODARONE HYDROCHLORIDE
     Dosage: 100 MG
     Route: 065
  20. AMIODARONE HYDROCHLORIDE [Suspect]
     Active Substance: AMIODARONE HYDROCHLORIDE
     Dosage: UNK
     Route: 065
  21. AMIODARONE HYDROCHLORIDE [Suspect]
     Active Substance: AMIODARONE HYDROCHLORIDE
     Dosage: 200 MG
     Route: 065
  22. AMIODARONE HYDROCHLORIDE [Suspect]
     Active Substance: AMIODARONE HYDROCHLORIDE
     Dosage: 200 MG
     Route: 065
  23. AMIODARONE HYDROCHLORIDE [Suspect]
     Active Substance: AMIODARONE HYDROCHLORIDE
     Dosage: 100 MG
     Route: 065
  24. AMIODARONE HYDROCHLORIDE [Suspect]
     Active Substance: AMIODARONE HYDROCHLORIDE
     Dosage: 100 MG
     Route: 065
  25. ASPIRIN [Suspect]
     Active Substance: ASPIRIN
     Indication: Product used for unknown indication
     Dosage: 100 MG
     Route: 065
     Dates: end: 2016
  26. ASPIRIN [Suspect]
     Active Substance: ASPIRIN
     Route: 065
     Dates: end: 2016
  27. ASPIRIN [Suspect]
     Active Substance: ASPIRIN
     Route: 065
     Dates: end: 2016
  28. APIXABAN [Suspect]
     Active Substance: APIXABAN
     Indication: Product used for unknown indication
     Dosage: 5 MG, Q12H
     Route: 065
  29. APIXABAN [Suspect]
     Active Substance: APIXABAN
     Dosage: 5 MG, BID (10 MG, QD)
     Route: 048
  30. WARFARIN SODIUM [Suspect]
     Active Substance: WARFARIN SODIUM
     Indication: Product used for unknown indication
     Dosage: 20 MG
     Route: 065
  31. WARFARIN SODIUM [Suspect]
     Active Substance: WARFARIN SODIUM
     Dosage: UNK
     Route: 065
  32. WARFARIN SODIUM [Suspect]
     Active Substance: WARFARIN SODIUM
     Dosage: 20 MG
     Route: 065
  33. WARFARIN SODIUM [Suspect]
     Active Substance: WARFARIN SODIUM
     Dosage: 20 MG
     Route: 065
  34. DALTEPARIN [Suspect]
     Active Substance: DALTEPARIN
     Indication: Product used for unknown indication
     Dosage: 10000 IU, QD (0.5 - DAILY)
     Route: 065
  35. DALTEPARIN [Suspect]
     Active Substance: DALTEPARIN
     Dosage: UNK, QD, 0.5 - DAILY
     Route: 065
  36. DALTEPARIN [Suspect]
     Active Substance: DALTEPARIN
     Dosage: 5000 IU
     Route: 065
  37. DALTEPARIN [Suspect]
     Active Substance: DALTEPARIN
     Dosage: UNK, Q12H
     Route: 065
  38. MESALAMINE [Suspect]
     Active Substance: MESALAMINE
     Indication: Product used for unknown indication
     Dosage: 100 MG
     Route: 065
     Dates: start: 2016
  39. MESALAMINE [Suspect]
     Active Substance: MESALAMINE
     Dosage: 100 MG
     Route: 065
     Dates: end: 2016
  40. METOPROLOL [Suspect]
     Active Substance: METOPROLOL
     Indication: Product used for unknown indication
     Dosage: 50 MG
     Route: 065
  41. METOPROLOL [Suspect]
     Active Substance: METOPROLOL
     Dosage: 25 MG
     Route: 065
  42. METOPROLOL [Suspect]
     Active Substance: METOPROLOL
     Dosage: UNK
     Route: 065
  43. METOPROLOL [Suspect]
     Active Substance: METOPROLOL
     Dosage: 25 MG
     Route: 065
  44. METOPROLOL [Suspect]
     Active Substance: METOPROLOL
     Dosage: 50 MG
     Route: 065
  45. CLOPIDOGREL BISULFATE [Suspect]
     Active Substance: CLOPIDOGREL BISULFATE
     Indication: Product used for unknown indication
     Dosage: 100 MG
     Route: 065
     Dates: start: 2016
  46. CLOPIDOGREL BISULFATE [Suspect]
     Active Substance: CLOPIDOGREL BISULFATE
     Dosage: 75 MG
     Route: 065
     Dates: end: 2016
  47. DALTEPARIN SODIUM [Suspect]
     Active Substance: DALTEPARIN SODIUM
     Indication: Product used for unknown indication
     Dosage: UNK, QD
     Route: 065
  48. METOPROLOL TARTRATE [Suspect]
     Active Substance: METOPROLOL TARTRATE
     Indication: Product used for unknown indication
     Dosage: 50 MG
     Route: 065
  49. METOPROLOL TARTRATE [Suspect]
     Active Substance: METOPROLOL TARTRATE
     Dosage: 25 MG
     Route: 065

REACTIONS (4)
  - Atrial fibrillation [Unknown]
  - Anastomotic infection [Unknown]
  - Adenocarcinoma of colon [Unknown]
  - Increased tendency to bruise [Unknown]

NARRATIVE: CASE EVENT DATE: 20160101
